FAERS Safety Report 6858387-6 (Version None)
Quarter: 2010Q3

REPORT INFORMATION
  Report Type: 
  Country: None (occurrence: None)
  Receive Date: 20100719
  Receipt Date: 20080207
  Transmission Date: 20110219
  Serious: Yes (Other)
  Sender: FDA-Public Use
  Company Number: US-PFIZER INC-2008013104

PATIENT
  Sex: Male
  Weight: 86.8 kg

DRUGS (1)
  1. CHANTIX [Suspect]
     Indication: SMOKING CESSATION THERAPY
     Dates: start: 20070801, end: 20071001

REACTIONS (4)
  - COMPLEX PARTIAL SEIZURES [None]
  - DISORIENTATION [None]
  - MALAISE [None]
  - VISION BLURRED [None]
